FAERS Safety Report 23869598 (Version 2)
Quarter: 2024Q2

REPORT INFORMATION
  Report Type: Spontaneous
  Country: CA (occurrence: CA)
  Receive Date: 20240517
  Receipt Date: 20240611
  Transmission Date: 20240715
  Serious: Yes (Hospitalization)
  Sender: FDA-Public Use
  Company Number: CA-BAYER-2024A067358

PATIENT
  Age: 17 Year

DRUGS (1)
  1. KOVALTRY [Suspect]
     Active Substance: ANTIHEMOPHILIC FACTOR, HUMAN RECOMBINANT
     Indication: Factor VIII deficiency
     Dosage: RECEIVED 50 UNITS/KG / FACTOR WAS INFUSES THROUGH 0.2 MICRON FILTER.
     Route: 042

REACTIONS (4)
  - Groin pain [None]
  - Haematoma muscle [None]
  - Wrong technique in product usage process [None]
  - Therapeutic product effect incomplete [None]
